FAERS Safety Report 6296059-X (Version None)
Quarter: 2009Q3

REPORT INFORMATION
  Report Type: 
  Country: None (occurrence: None)
  Receive Date: 20090804
  Receipt Date: 20090729
  Transmission Date: 20100115
  Serious: Yes (Hospitalization)
  Sender: FDA-Public Use
  Company Number: FR-BRISTOL-MYERS SQUIBB COMPANY-14722078

PATIENT
  Age: 94 Year
  Sex: Female

DRUGS (5)
  1. COAPROVEL FILM-COATED TABS 150/12.5 MG [Suspect]
     Indication: HYPERTENSION
     Route: 048
     Dates: end: 20090512
  2. PARIET [Suspect]
     Indication: GASTROOESOPHAGEAL REFLUX PROPHYLAXIS
     Dosage: 1 DF = PARIET 10 MG ONE TABLET DAILY
     Route: 048
     Dates: start: 20090401, end: 20090516
  3. MOTILIUM [Suspect]
     Indication: NAUSEA
     Dosage: 1 DF = MOTILIUM 10 MG ONE TABLET DAILY
     Route: 048
     Dates: start: 20090508, end: 20090513
  4. TORENTAL [Suspect]
     Indication: PERIPHERAL VASCULAR DISORDER
     Dosage: 1 DF = TORENTAL SR 400 MG ONE TABLET
     Route: 048
     Dates: end: 20090514
  5. CALCIPARINE [Suspect]
     Indication: PULMONARY EMBOLISM
     Dosage: 1 DF = ONE ADMINISTRATION
     Route: 058
     Dates: start: 20090514, end: 20090517

REACTIONS (2)
  - PULMONARY EMBOLISM [None]
  - THROMBOCYTOPENIA [None]
